FAERS Safety Report 15187057 (Version 1)
Quarter: 2018Q3

REPORT INFORMATION
  Report Type: Report from Study
  Country: US (occurrence: US)
  Receive Date: 20180723
  Receipt Date: 20180723
  Transmission Date: 20181010
  Serious: No
  Sender: FDA-Public Use
  Company Number: US-EXELIXIS-CABO-18013966

PATIENT
  Sex: Male

DRUGS (20)
  1. XGEVA [Concomitant]
     Active Substance: DENOSUMAB
  2. LEVOTHYROXINE. [Concomitant]
     Active Substance: LEVOTHYROXINE
  3. LIPITOR [Concomitant]
     Active Substance: ATORVASTATIN CALCIUM
  4. TYLENOL 8HR [Concomitant]
     Active Substance: ACETAMINOPHEN
  5. CABOMETYX [Suspect]
     Active Substance: CABOZANTINIB S-MALATE
     Indication: RENAL CANCER
     Dosage: 60 MG, QD
     Dates: start: 20170815
  6. LANTUS [Concomitant]
     Active Substance: INSULIN GLARGINE
  7. ASPIRIN. [Concomitant]
     Active Substance: ASPIRIN
  8. WARFARIN [Concomitant]
     Active Substance: WARFARIN
  9. GELCLAIR [Concomitant]
  10. OXYCODONE [Concomitant]
     Active Substance: OXYCODONE
  11. CABOMETYX [Suspect]
     Active Substance: CABOZANTINIB S-MALATE
     Indication: NEOPLASM MALIGNANT
     Dosage: 20 MG, QD
     Route: 048
  12. NORVASC [Concomitant]
     Active Substance: AMLODIPINE BESYLATE
  13. METOPROLOL. [Concomitant]
     Active Substance: METOPROLOL
  14. OMEGA 3 [Concomitant]
     Active Substance: OMEGA-3 FATTY ACIDS
  15. VITAMIN D [Concomitant]
     Active Substance: CHOLECALCIFEROL
  16. ONE DAILY MEN^S HEALTH [Concomitant]
  17. CALTRATE [Concomitant]
     Active Substance: CALCIUM CARBONATE
  18. CODEINE SULFATE. [Concomitant]
     Active Substance: CODEINE SULFATE
  19. IMDUR [Concomitant]
     Active Substance: ISOSORBIDE MONONITRATE
  20. RESVERATROL [Concomitant]
     Active Substance: DIETARY SUPPLEMENT\RESVERATROL

REACTIONS (3)
  - Diarrhoea [Not Recovered/Not Resolved]
  - Stomatitis [Unknown]
  - Glossodynia [Not Recovered/Not Resolved]
